FAERS Safety Report 25877706 (Version 1)
Quarter: 2025Q4

REPORT INFORMATION
  Report Type: Spontaneous
  Country: US (occurrence: None)
  Receive Date: 20251001
  Receipt Date: 20251001
  Transmission Date: 20260117
  Serious: Yes (Life-Threatening, Hospitalization, Other)
  Sender: FDA-CTU
  Company Number: None

PATIENT
  Age: 64 Year
  Sex: Female
  Weight: 83.25 kg

DRUGS (1)
  1. JARDIANCE [Suspect]
     Active Substance: EMPAGLIFLOZIN
     Indication: Renal disorder
     Route: 048
     Dates: start: 20240910, end: 20250601

REACTIONS (2)
  - Osteomyelitis [None]
  - Foot amputation [None]

NARRATIVE: CASE EVENT DATE: 20250812
